FAERS Safety Report 6986624-6 (Version None)
Quarter: 2010Q3

REPORT INFORMATION
  Report Type: 
  Country: None (occurrence: None)
  Receive Date: 20100827
  Receipt Date: 20091019
  Transmission Date: 20110219
  Serious: Yes (Other)
  Sender: FDA-Public Use
  Company Number: AMAG200900032

PATIENT
  Age: 51 Year
  Sex: Male

DRUGS (10)
  1. FERAHEME [Suspect]
     Indication: IRON DEFICIENCY ANAEMIA
     Dosage: 300 MG, SINGLE, INTRAVENOUS
     Route: 042
     Dates: start: 20091012, end: 20091012
  2. CALCIUM (CALCIUM GLUBIONATE0 [Concomitant]
  3. CLONIDINE [Concomitant]
  4. EPOGEN [Concomitant]
  5. HEPARIN [Concomitant]
  6. LASIX [Concomitant]
  7. RENAGEL [Concomitant]
  8. SENSIPAR [Concomitant]
  9. SYNTHROID [Concomitant]
  10. ZEMPLAR [Concomitant]

REACTIONS (3)
  - ARTHRALGIA [None]
  - HYPOTENSION [None]
  - PRURITUS [None]
